FAERS Safety Report 7242559-5 (Version None)
Quarter: 2010Q4

REPORT INFORMATION
  Report Type: 
  Country: None (occurrence: None)
  Receive Date: 20101130
  Receipt Date: 20090729
  Transmission Date: 20110411
  Serious: Yes (Hospitalization)
  Sender: FDA-Public Use
  Company Number: 2009SP017409

PATIENT
  Age: 33 Year
  Sex: Female
  Weight: 65.7716 kg

DRUGS (3)
  1. NUVARING [Suspect]
     Indication: CONTRACEPTION
     Dosage: QM; VAG
     Route: 067
     Dates: start: 20030703, end: 20051202
  2. IMITREX [Concomitant]
  3. IBUPROFEN [Concomitant]

REACTIONS (5)
  - ACUTE SINUSITIS [None]
  - DEEP VEIN THROMBOSIS [None]
  - MIGRAINE [None]
  - POST THROMBOTIC SYNDROME [None]
  - PULMONARY EMBOLISM [None]
